FAERS Safety Report 24957021 (Version 1)
Quarter: 2025Q1

REPORT INFORMATION
  Report Type: Spontaneous
  Country: CA (occurrence: CA)
  Receive Date: 20250211
  Receipt Date: 20250211
  Transmission Date: 20250409
  Serious: Yes (Death)
  Sender: PFIZER
  Company Number: CA-PFIZER INC-PV202500014648

PATIENT
  Age: 74 Year
  Sex: Female

DRUGS (12)
  1. FLUCONAZOLE [Suspect]
     Active Substance: FLUCONAZOLE
     Indication: Amoebiasis
  2. FLUCONAZOLE [Suspect]
     Active Substance: FLUCONAZOLE
     Indication: Encephalitis
  3. PENTAMIDINE ISETHIONATE [Suspect]
     Active Substance: PENTAMIDINE ISETHIONATE
     Indication: Amoebiasis
     Route: 042
  4. PENTAMIDINE ISETHIONATE [Suspect]
     Active Substance: PENTAMIDINE ISETHIONATE
     Indication: Encephalitis
  5. AZITHROMYCIN [Suspect]
     Active Substance: AZITHROMYCIN
     Indication: Amoebiasis
  6. AZITHROMYCIN [Suspect]
     Active Substance: AZITHROMYCIN
     Indication: Encephalitis
  7. SULFAMETHOXAZOLE\TRIMETHOPRIM [Suspect]
     Active Substance: SULFAMETHOXAZOLE\TRIMETHOPRIM
     Indication: Encephalitis
  8. SULFAMETHOXAZOLE\TRIMETHOPRIM [Suspect]
     Active Substance: SULFAMETHOXAZOLE\TRIMETHOPRIM
     Indication: Amoebiasis
  9. FLUCYTOSINE [Suspect]
     Active Substance: FLUCYTOSINE
     Indication: Encephalitis
  10. FLUCYTOSINE [Suspect]
     Active Substance: FLUCYTOSINE
     Indication: Amoebiasis
  11. MILTEFOSINE [Suspect]
     Active Substance: MILTEFOSINE
     Indication: Encephalitis
  12. MILTEFOSINE [Suspect]
     Active Substance: MILTEFOSINE
     Indication: Amoebiasis

REACTIONS (2)
  - Off label use [Fatal]
  - Drug ineffective for unapproved indication [Fatal]
